FAERS Safety Report 6855694-8 (Version None)
Quarter: 2010Q3

REPORT INFORMATION
  Report Type: 
  Country: None (occurrence: None)
  Receive Date: 20100719
  Receipt Date: 20100426
  Transmission Date: 20110219
  Serious: No
  Sender: FDA-Public Use
  Company Number: US-KINGPHARMUSA00001-K201000501

PATIENT
  Sex: Female
  Weight: 61.224 kg

DRUGS (1)
  1. LEVOXYL [Suspect]
     Indication: HYPOTHYROIDISM
     Dosage: 50 MCG, QD
     Route: 048
     Dates: start: 20050101

REACTIONS (1)
  - ORAL DISCOMFORT [None]
